FAERS Safety Report 4594847-9 (Version None)
Quarter: 2005Q1

REPORT INFORMATION
  Report Type: 
  Country: None (occurrence: None)
  Receive Date: 20050224
  Receipt Date: 20040401
  Transmission Date: 20050727
  Serious: Yes (Hospitalization, Other)
  Sender: FDA-Public Use
  Company Number: GXKR2004FR00747

PATIENT
  Age: 82 Year
  Sex: Male

DRUGS (2)
  1. BISOPROLOL FUMARATE [Suspect]
     Indication: ISCHAEMIC CARDIOMYOPATHY
     Dosage: ORAL
     Route: 048
     Dates: start: 20031115, end: 20040114
  2. CORDARONE [Suspect]
     Indication: ATRIAL FIBRILLATION
     Dates: start: 20040107, end: 20040114

REACTIONS (9)
  - ACUTE CORONARY SYNDROME [None]
  - ASTHENIA [None]
  - ATRIAL FIBRILLATION [None]
  - ATRIOVENTRICULAR BLOCK FIRST DEGREE [None]
  - BRADYCARDIA [None]
  - DRUG INTERACTION [None]
  - DYSPNOEA [None]
  - INTERNATIONAL NORMALISED RATIO INCREASED [None]
  - OEDEMA PERIPHERAL [None]
